FAERS Safety Report 10862994 (Version 1)
Quarter: 2015Q1

REPORT INFORMATION
  Report Type: Spontaneous
  Country: GB (occurrence: GB)
  Receive Date: 20150224
  Receipt Date: 20150224
  Transmission Date: 20150721
  Serious: Yes (Other)
  Sender: FDA-Public Use
  Company Number: GB-GALDERMA-GB15000589

PATIENT
  Age: 47 Year
  Sex: Female
  Weight: 88 kg

DRUGS (1)
  1. BRIMONIDINE TARTRATE. [Suspect]
     Active Substance: BRIMONIDINE TARTRATE
     Indication: PRODUCT USED FOR UNKNOWN INDICATION
     Dates: start: 20140612

REACTIONS (1)
  - Flushing [Recovering/Resolving]

NARRATIVE: CASE EVENT DATE: 20140612
